FAERS Safety Report 9929026 (Version 2)
Quarter: 2014Q2

REPORT INFORMATION
  Report Type: Spontaneous
  Country: JP (occurrence: JP)
  Receive Date: 20140227
  Receipt Date: 20140617
  Transmission Date: 20141212
  Serious: Yes (Other)
  Sender: FDA-Public Use
  Company Number: PHHY2014JP022893

PATIENT
  Age: 71 Year
  Sex: Female

DRUGS (4)
  1. TASIGNA [Suspect]
     Indication: ACUTE LEUKAEMIA
     Dosage: 800 MG, UNK
  2. VINCRISTINE [Concomitant]
  3. PREDNISOLONE [Concomitant]
  4. DEXAMETHASONE [Concomitant]
     Indication: ACUTE LEUKAEMIA
     Dosage: 20 MG, UNK

REACTIONS (2)
  - Leukaemia recurrent [Unknown]
  - Acute leukaemia [Unknown]
